FAERS Safety Report 20309381 (Version 1)
Quarter: 2022Q1

REPORT INFORMATION
  Report Type: Spontaneous
  Country: CN (occurrence: None)
  Receive Date: 20220107
  Receipt Date: 20220107
  Transmission Date: 20220423
  Serious: Yes (Hospitalization)
  Sender: FDA-Public Use
  Company Number: CN-ROCHE-2995539

PATIENT
  Age: 62 Year
  Sex: Male
  Weight: 55 kg

DRUGS (5)
  1. BEVACIZUMAB [Suspect]
     Active Substance: BEVACIZUMAB
     Indication: Lung neoplasm malignant
     Route: 041
     Dates: start: 20211118, end: 20211118
  2. TEMOZOLOMIDE [Concomitant]
     Active Substance: TEMOZOLOMIDE
     Indication: Lung neoplasm malignant
  3. CARBOPLATIN [Concomitant]
     Active Substance: CARBOPLATIN
     Indication: Lung neoplasm malignant
  4. DOCETAXEL [Concomitant]
     Active Substance: DOCETAXEL
     Indication: Lung neoplasm malignant
  5. PEMETREXED [Concomitant]
     Active Substance: PEMETREXED
     Indication: Lung neoplasm malignant

REACTIONS (2)
  - Proteinuria [Unknown]
  - Blood thyroid stimulating hormone increased [Unknown]

NARRATIVE: CASE EVENT DATE: 20211118
